FAERS Safety Report 13830940 (Version 3)
Quarter: 2017Q4

REPORT INFORMATION
  Report Type: Spontaneous
  Country: US (occurrence: US)
  Receive Date: 20170803
  Receipt Date: 20171107
  Transmission Date: 20180320
  Serious: Yes (Other)
  Sender: FDA-Public Use
  Company Number: US-JNJFOC-20170727094

PATIENT
  Age: 61 Year
  Sex: Female
  Weight: 58.06 kg

DRUGS (8)
  1. REXULTI [Concomitant]
     Active Substance: BREXPIPRAZOLE
     Route: 048
     Dates: start: 20170804
  2. XARELTO [Suspect]
     Active Substance: RIVAROXABAN
     Indication: THROMBOSIS
     Route: 048
     Dates: start: 2017
  3. KLONOPIN [Concomitant]
     Active Substance: CLONAZEPAM
     Indication: SLEEP DISORDER
     Dosage: BEFORE BEDTIME
     Route: 065
  4. REXULTI [Concomitant]
     Active Substance: BREXPIPRAZOLE
     Route: 048
  5. IRON FERROUS SULFATE [Concomitant]
     Indication: ANAEMIA
     Route: 065
  6. ENSURE [Concomitant]
     Active Substance: AMINO ACIDS\DEXTROSE\ELECTROLYTES NOS\SOYBEAN OIL\VITAMINS
     Route: 065
  7. XARELTO [Suspect]
     Active Substance: RIVAROXABAN
     Indication: THROMBOSIS
     Route: 048
     Dates: start: 20170501, end: 2017
  8. KLONOPIN [Concomitant]
     Active Substance: CLONAZEPAM
     Indication: ANXIETY
     Dosage: BEFORE BEDTIME
     Route: 065

REACTIONS (5)
  - Injection site haemorrhage [Recovered/Resolved]
  - Thrombosis [Not Recovered/Not Resolved]
  - Injection site extravasation [Recovered/Resolved]
  - Poor quality sleep [Not Recovered/Not Resolved]
  - Anxiety [Unknown]

NARRATIVE: CASE EVENT DATE: 201706
